FAERS Safety Report 10155753 (Version 1)
Quarter: 2014Q2

REPORT INFORMATION
  Report Type: Report from Study
  Country: CO (occurrence: CO)
  Receive Date: 20140506
  Receipt Date: 20140506
  Transmission Date: 20141212
  Serious: Yes (Other)
  Sender: FDA-Public Use
  Company Number: CO-ABBVIE-14P-036-1234195-00

PATIENT
  Age: 68 Year
  Sex: Female
  Weight: 60 kg

DRUGS (1)
  1. HUMIRA [Suspect]
     Indication: PSORIASIS
     Route: 058
     Dates: start: 20130828, end: 20140402

REACTIONS (8)
  - Inflammation [Recovering/Resolving]
  - Fall [Recovering/Resolving]
  - Head injury [Recovering/Resolving]
  - Pain in extremity [Recovering/Resolving]
  - Haematoma [Recovering/Resolving]
  - Fibula fracture [Recovering/Resolving]
  - Psoriasis [Unknown]
  - Limb injury [Recovering/Resolving]
